FAERS Safety Report 4952731-2 (Version None)
Quarter: 2006Q1

REPORT INFORMATION
  Report Type: 
  Country: None (occurrence: None)
  Receive Date: 20060324
  Receipt Date: 20060221
  Transmission Date: 20060701
  Serious: Yes (Death)
  Sender: FDA-Public Use
  Company Number: NO-JNJFOC-20060205740

PATIENT
  Sex: Female

DRUGS (7)
  1. REMICADE [Suspect]
     Indication: RHEUMATOID ARTHRITIS
     Dosage: ONE DOSE GIVEN
     Route: 042
  2. ENBREL [Suspect]
     Indication: RHEUMATOID ARTHRITIS
     Route: 058
  3. PREDNISOLONE [Concomitant]
     Route: 048
  4. FOLSYRE NAF [Concomitant]
     Route: 048
  5. FLUTIDE [Concomitant]
     Route: 055
  6. METOJECT [Concomitant]
     Route: 058
  7. GLUXINE [Concomitant]
     Route: 048

REACTIONS (1)
  - CARDIAC DEATH [None]
